FAERS Safety Report 5013805-3 (Version None)
Quarter: 2006Q2

REPORT INFORMATION
  Report Type: 
  Country: None (occurrence: None)
  Receive Date: 20060530
  Receipt Date: 20040920
  Transmission Date: 20061013
  Serious: Yes (Death, Hospitalization)
  Sender: FDA-Public Use
  Company Number: TH-ROCHE-381052

PATIENT
  Age: 61 Year
  Sex: Female

DRUGS (2)
  1. CAPECITABINE [Suspect]
     Indication: BREAST CANCER
     Route: 048
     Dates: start: 20040901, end: 20040903
  2. IXABEPILONE [Suspect]
     Indication: BREAST CANCER
     Dosage: ONE PER ONE CYCLE.
     Route: 042
     Dates: start: 20040901, end: 20040901

REACTIONS (22)
  - ABDOMINAL DISTENSION [None]
  - ANAEMIA [None]
  - CARDIAC ARREST [None]
  - CONTUSION [None]
  - COUGH [None]
  - DIARRHOEA [None]
  - DIFFICULT TO WEAN FROM VENTILATOR [None]
  - DISSEMINATED INTRAVASCULAR COAGULATION [None]
  - DYSPNOEA [None]
  - ECCHYMOSIS [None]
  - ESCHERICHIA BACTERAEMIA [None]
  - HEPATOMEGALY [None]
  - HYPOALBUMINAEMIA [None]
  - HYPOKALAEMIA [None]
  - HYPONATRAEMIA [None]
  - NEUTROPENIA [None]
  - PANCYTOPENIA [None]
  - PLEURAL EFFUSION [None]
  - PNEUMONIA [None]
  - RESPIRATORY FAILURE [None]
  - SEPSIS [None]
  - SOMNOLENCE [None]
